FAERS Safety Report 15646631 (Version 1)
Quarter: 2018Q4

REPORT INFORMATION
  Report Type: Spontaneous
  Country: AT (occurrence: AT)
  Receive Date: 20181122
  Receipt Date: 20181122
  Transmission Date: 20190205
  Serious: Yes (Hospitalization)
  Sender: FDA-Public Use
  Company Number: AT-TEVA-2018-AT-976791

PATIENT
  Age: 71 Year
  Sex: Female
  Weight: 46 kg

DRUGS (25)
  1. REVLIMID [Suspect]
     Active Substance: LENALIDOMIDE
     Indication: PLASMA CELL MYELOMA
     Dosage: 25 MILLIGRAM DAILY; 25 MG
     Route: 048
     Dates: start: 20160708, end: 20160727
  2. REVLIMID [Suspect]
     Active Substance: LENALIDOMIDE
     Dosage: 25 MILLIGRAM DAILY; 25MG
     Route: 048
  3. METAMIZOLE SODIUM [Concomitant]
     Active Substance: METAMIZOLE SODIUM
     Indication: ANTIINFLAMMATORY THERAPY
     Dosage: 750 ML DAILY; 750 MILLILITER
     Route: 065
     Dates: start: 20160503
  4. AVELOX [Concomitant]
     Active Substance: MOXIFLOXACIN HYDROCHLORIDE
     Indication: PYREXIA
     Route: 065
  5. LEKOVIT [Concomitant]
     Indication: OSTEOPOROSIS PROPHYLAXIS
     Dosage: 40 MILLIGRAM
     Route: 048
     Dates: start: 20160708
  6. URBASON [Concomitant]
     Active Substance: METHYLPREDNISOLONE
     Indication: RASH
     Route: 065
  7. MOXIFLOXACIN HYDROCHLORIDE. [Concomitant]
     Active Substance: MOXIFLOXACIN HYDROCHLORIDE
     Indication: RASH
     Dosage: 8 DOSAGE FORMS
     Route: 065
  8. VALACICLOVIR [Concomitant]
     Active Substance: VALACYCLOVIR HYDROCHLORIDE
     Indication: ANTIVIRAL PROPHYLAXIS
     Dosage: 500 MG
     Route: 065
     Dates: start: 20160601
  9. HYDROMORPHONE [Concomitant]
     Active Substance: HYDROMORPHONE
     Indication: PAIN MANAGEMENT
     Dosage: 8 DOSAGE FORMS DAILY; 8 DF
     Route: 048
     Dates: start: 20160708
  10. AVELOX [Concomitant]
     Active Substance: MOXIFLOXACIN HYDROCHLORIDE
     Indication: RASH
     Route: 065
     Dates: start: 20160722
  11. AMPHOTERICIN B. [Concomitant]
     Active Substance: AMPHOTERICIN B
     Indication: PROPHYLAXIS
     Dosage: 40 MILLIGRAM DAILY; 40 MG
     Route: 048
     Dates: start: 20160708
  12. ALLOPURINOL. [Concomitant]
     Active Substance: ALLOPURINOL
     Indication: PROPHYLAXIS
     Dosage: 300 MILLIGRAM DAILY; 300 MG
     Route: 048
     Dates: start: 20160708
  13. DEXPANTHENOL. [Concomitant]
     Active Substance: DEXPANTHENOL
     Indication: WOUND TREATMENT
     Dosage: 750 ML DAILY; 750 MLLTR
     Route: 065
     Dates: start: 20160708
  14. CYMEVENE [Concomitant]
     Active Substance: GANCICLOVIR
     Indication: PRODUCT USED FOR UNKNOWN INDICATION
     Route: 041
  15. DEXAMETHASONE. [Suspect]
     Active Substance: DEXAMETHASONE
     Indication: PLASMA CELL MYELOMA
     Dosage: 40 MG
     Route: 065
     Dates: start: 20160708, end: 20160810
  16. MEROKEN [Concomitant]
     Indication: CONSTIPATION PROPHYLAXIS
     Route: 048
     Dates: start: 20160708
  17. URBASON [Concomitant]
     Active Substance: METHYLPREDNISOLONE
     Indication: PYREXIA
     Route: 065
     Dates: start: 20160726
  18. PARACETAMOL [Concomitant]
     Active Substance: ACETAMINOPHEN
     Indication: PAIN MANAGEMENT
     Dosage: 500MG
     Route: 048
     Dates: start: 20160708
  19. DEXAMETHASONE. [Suspect]
     Active Substance: DEXAMETHASONE
     Dosage: 40MG
     Route: 065
  20. DEXAMETHASONE. [Suspect]
     Active Substance: DEXAMETHASONE
     Dosage: 40MG
     Route: 065
     Dates: start: 20160708, end: 20160810
  21. HYDROMORPHONE HYDROCHLORIDE. [Concomitant]
     Active Substance: HYDROMORPHONE HYDROCHLORIDE
     Indication: PAIN MANAGEMENT
     Dosage: 1.3MG
     Route: 048
     Dates: start: 20160708
  22. ONDANSETRON [Concomitant]
     Active Substance: ONDANSETRON
     Indication: PROPHYLAXIS
     Dosage: 8 MG
     Route: 065
     Dates: start: 20160708
  23. AMPHO MORONAL [Concomitant]
     Active Substance: AMPHOTERICIN B
     Indication: PRODUCT USED FOR UNKNOWN INDICATION
     Route: 065
     Dates: start: 20160708
  24. PANTOPRAZOLE [Concomitant]
     Active Substance: PANTOPRAZOLE
     Indication: GASTRITIS PROPHYLAXIS
     Dosage: 40 MILLIGRAM DAILY; 40MG
     Route: 048
     Dates: start: 20160708
  25. XGEVA [Concomitant]
     Active Substance: DENOSUMAB
     Indication: PROPHYLAXIS
     Dosage: 4 MG
     Route: 041
     Dates: start: 20160608

REACTIONS (1)
  - Rash [Recovered/Resolved]

NARRATIVE: CASE EVENT DATE: 20160722
